FAERS Safety Report 4523600-7 (Version None)
Quarter: 2004Q4

REPORT INFORMATION
  Report Type: 
  Country: None (occurrence: None)
  Receive Date: 20041117
  Receipt Date: 20040729
  Transmission Date: 20050328
  Serious: Yes (Hospitalization)
  Sender: FDA-Public Use
  Company Number: DE-JNJFOC-20040800500

PATIENT
  Age: 84 Year
  Sex: Male

DRUGS (15)
  1. LEVOFLOXACIN [Suspect]
     Indication: PNEUMONIA
     Dosage: INTRAVENOUS
     Route: 042
     Dates: start: 20031219, end: 20031221
  2. XOPENEX [Concomitant]
  3. TYLENOL [Concomitant]
  4. HUMALIN (INSULIN) [Concomitant]
  5. DIGOXIN [Concomitant]
  6. PEPCID [Concomitant]
  7. PROTONIX [Concomitant]
  8. GLUCOPHAGE [Concomitant]
  9. KCL (POTASSIUM CHLORIDE) [Concomitant]
  10. ZESTRIL [Concomitant]
  11. ALDACTONE [Concomitant]
  12. BENADRYL [Concomitant]
  13. PRINIVIL [Concomitant]
  14. COLACE (DOCUSATE SODIUM) [Concomitant]
  15. ASPIRIN [Concomitant]

REACTIONS (3)
  - ATRIAL FIBRILLATION [None]
  - CARDIAC FAILURE CONGESTIVE [None]
  - PNEUMONIA [None]
